FAERS Safety Report 4395378-1 (Version None)
Quarter: 2004Q3

REPORT INFORMATION
  Report Type: 
  Country: None (occurrence: None)
  Receive Date: 20040707
  Receipt Date: 20040624
  Transmission Date: 20050211
  Serious: Yes (Hospitalization, Other)
  Sender: FDA-Public Use
  Company Number: 2004038603

PATIENT
  Age: 17 Month
  Sex: Female
  Weight: 9.8 kg

DRUGS (1)
  1. ZITHROMAX [Suspect]
     Indication: ILL-DEFINED DISORDER
     Dosage: 100 MG (ORAL)
     Route: 048
     Dates: start: 20040601, end: 20040601

REACTIONS (7)
  - ANAPHYLACTIC SHOCK [None]
  - BLOOD PRESSURE DECREASED [None]
  - DYSPNOEA [None]
  - EYE SWELLING [None]
  - OXYGEN SATURATION DECREASED [None]
  - RASH GENERALISED [None]
  - STRIDOR [None]
